FAERS Safety Report 9535884 (Version 1)
Quarter: 2013Q2

REPORT INFORMATION
  Report Type: Spontaneous
  Country: US (occurrence: None)
  Receive Date: 20130507
  Receipt Date: 20130507
  Transmission Date: 20140414
  Serious: No
  Sender: FDA-Public Use
  Company Number: PHEH0213US004290

PATIENT
  Age: 56 Year
  Sex: Female
  Weight: 51.7 kg

DRUGS (5)
  1. AFINITOR (RAD) TABLET, 10MG [Suspect]
     Indication: BREAST CANCER
     Route: 048
  2. LEVOTHYROXINE (LEVOTHYROXINE) [Concomitant]
  3. ZOLPIDEM (ZOLPIDEM) [Concomitant]
  4. SPIRULINA (SPIRULINA) TABLET [Concomitant]
  5. CALCIUM +D (CALCIUM CARBONATE, COLECALCIFEROL) [Concomitant]

REACTIONS (4)
  - Tongue discolouration [None]
  - Pain of skin [None]
  - Rash [None]
  - Abdominal pain upper [None]
